FAERS Safety Report 18176495 (Version 1)
Quarter: 2020Q3

REPORT INFORMATION
  Report Type: Report from Study
  Country: US (occurrence: US)
  Receive Date: 20200820
  Receipt Date: 20200820
  Transmission Date: 20201103
  Serious: Yes (Death)
  Sender: FDA-Public Use
  Company Number: US-ELI_LILLY_AND_COMPANY-US202008007656

PATIENT

DRUGS (4)
  1. ENOXAPARIN [Concomitant]
     Active Substance: ENOXAPARIN
     Indication: THROMBOSIS PROPHYLAXIS
     Dosage: 1 MG/KG, DAILY
     Route: 058
  2. GEMCITABINE HYDROCHLORIDE. [Suspect]
     Active Substance: GEMCITABINE HYDROCHLORIDE
     Indication: DUCTAL ADENOCARCINOMA OF PANCREAS
     Dosage: 1.000 MG/M2, CYCLICAL
     Route: 042
  3. PACLITAXEL ALBUMIN [Concomitant]
     Active Substance: PACLITAXEL
     Indication: DUCTAL ADENOCARCINOMA OF PANCREAS
     Dosage: 125 MG/M2, CYCLICAL
     Route: 042
  4. PEGVORHYALURONIDASE ALFA [Concomitant]
     Active Substance: PEGVORHYALURONIDASE ALFA
     Indication: DUCTAL ADENOCARCINOMA OF PANCREAS
     Dosage: 3 UG/KG, CYCLICAL
     Route: 042

REACTIONS (1)
  - Death [Fatal]
